FAERS Safety Report 12630620 (Version 4)
Quarter: 2016Q3

REPORT INFORMATION
  Report Type: Report from Study
  Country: ES (occurrence: ES)
  Receive Date: 20160808
  Receipt Date: 20160829
  Transmission Date: 20161109
  Serious: Yes (Hospitalization, Other)
  Sender: FDA-Public Use
  Company Number: ES-ABBVIE-16K-144-1693075-00

PATIENT
  Age: 64 Year
  Sex: Female

DRUGS (1)
  1. DUODOPA [Suspect]
     Active Substance: CARBIDOPA\LEVODOPA
     Indication: PARKINSON^S DISEASE
     Route: 050
     Dates: start: 201307

REACTIONS (5)
  - Gastrointestinal stoma complication [Recovered/Resolved]
  - Oxygen saturation abnormal [Recovered/Resolved]
  - Anaesthetic complication vascular [Recovered/Resolved]
  - Tumour marker abnormal [Unknown]
  - Breast cancer female [Unknown]

NARRATIVE: CASE EVENT DATE: 20160728
